FAERS Safety Report 9573295 (Version 2)
Quarter: 2013Q4

REPORT INFORMATION
  Report Type: Report from Study
  Country: US (occurrence: US)
  Receive Date: 20131001
  Receipt Date: 20131001
  Transmission Date: 20140711
  Serious: Yes (Other)
  Sender: FDA-Public Use
  Company Number: US-BAXTER-2013BAX036262

PATIENT
  Sex: Male

DRUGS (2)
  1. ARALAST NP [Suspect]
     Indication: PRODUCT USED FOR UNKNOWN INDICATION
     Route: 042
  2. VOTRIENT [Suspect]
     Indication: PRODUCT USED FOR UNKNOWN INDICATION
     Route: 065

REACTIONS (4)
  - Neoplasm malignant [Not Recovered/Not Resolved]
  - Metastases to lung [Not Recovered/Not Resolved]
  - Weight decreased [Not Recovered/Not Resolved]
  - Appetite disorder [Not Recovered/Not Resolved]
